FAERS Safety Report 15524946 (Version 1)
Quarter: 2018Q4

REPORT INFORMATION
  Report Type: Report from Study
  Country: JP (occurrence: JP)
  Receive Date: 20181019
  Receipt Date: 20181019
  Transmission Date: 20190205
  Serious: Yes (Hospitalization, Disabling, Other)
  Sender: FDA-Public Use
  Company Number: JP-BAUSCH-BL-2018-028112

PATIENT
  Age: 73 Year
  Sex: Male

DRUGS (7)
  1. TAKEPRON [Concomitant]
     Active Substance: LANSOPRAZOLE
     Indication: PRODUCT USED FOR UNKNOWN INDICATION
  2. AMARYL [Concomitant]
     Active Substance: GLIMEPIRIDE
     Indication: PRODUCT USED FOR UNKNOWN INDICATION
  3. ADALAT CC [Concomitant]
     Active Substance: NIFEDIPINE
     Indication: PRODUCT USED FOR UNKNOWN INDICATION
  4. BUFFERIN [Concomitant]
     Active Substance: ASPIRIN
     Indication: PRODUCT USED FOR UNKNOWN INDICATION
  5. FRANDOL [Concomitant]
     Active Substance: ISOSORBIDE DINITRATE
     Indication: PRODUCT USED FOR UNKNOWN INDICATION
  6. VISUDYNE [Suspect]
     Active Substance: VERTEPORFIN
     Indication: MACULAR DEGENERATION
     Route: 042
     Dates: start: 20040614, end: 20040614
  7. BLOPRESS [Concomitant]
     Active Substance: CANDESARTAN CILEXETIL
     Indication: PRODUCT USED FOR UNKNOWN INDICATION

REACTIONS (3)
  - Retinal haemorrhage [Recovered/Resolved]
  - Intraocular pressure increased [Recovered/Resolved]
  - Vitreous haemorrhage [Recovered/Resolved]

NARRATIVE: CASE EVENT DATE: 20040810
